FAERS Safety Report 24122936 (Version 1)
Quarter: 2024Q3

REPORT INFORMATION
  Report Type: Report from Study
  Country: PL (occurrence: PL)
  Receive Date: 20240723
  Receipt Date: 20240723
  Transmission Date: 20241017
  Serious: Yes (Hospitalization)
  Sender: JOHNSON AND JOHNSON
  Company Number: PL-JNJFOC-20240749528

PATIENT
  Sex: Male
  Weight: 70 kg

DRUGS (8)
  1. MACITENTAN [Suspect]
     Active Substance: MACITENTAN
     Indication: Pulmonary arterial hypertension
     Route: 048
     Dates: start: 20240126, end: 20240701
  2. REVATIO [Concomitant]
     Active Substance: SILDENAFIL CITRATE
     Indication: Pulmonary arterial hypertension
     Route: 048
     Dates: start: 20230828
  3. OZZION [Concomitant]
     Indication: Peptic ulcer
     Route: 048
  4. ASPARGIN [ASPARTIC ACID] [Concomitant]
     Indication: Hypokalaemia
     Route: 048
  5. METHIMAZOLE [Concomitant]
     Active Substance: METHIMAZOLE
     Indication: Hypothyroidism
     Route: 048
  6. ROXITHROMYCIN [Concomitant]
     Active Substance: ROXITHROMYCIN
     Indication: Hyperlipidaemia
     Route: 048
  7. PLAVIX [Concomitant]
     Active Substance: CLOPIDOGREL BISULFATE
     Indication: Myocardial ischaemia
     Dates: start: 202305
  8. LOSARTAN POTASSIUM [Concomitant]
     Active Substance: LOSARTAN POTASSIUM
     Indication: Myocardial ischaemia
     Route: 048
     Dates: start: 202305

REACTIONS (2)
  - Cardiac failure [Unknown]
  - General physical health deterioration [Unknown]

NARRATIVE: CASE EVENT DATE: 20240424
